FAERS Safety Report 7705703-9 (Version None)
Quarter: 2011Q3

REPORT INFORMATION
  Report Type: 
  Country: None (occurrence: None)
  Receive Date: 20110824
  Receipt Date: 20110810
  Transmission Date: 20111222
  Serious: Yes (Other)
  Sender: FDA-Public Use
  Company Number: US-BRACCO-004941

PATIENT
  Sex: Male
  Weight: 91 kg

DRUGS (21)
  1. EPOGEN [Concomitant]
  2. ACCUPRIL [Concomitant]
  3. CONTRAST MEDIA [Suspect]
     Indication: NUCLEAR MAGNETIC RESONANCE IMAGING
     Dates: start: 20021105, end: 20021105
  4. MAGNEVIST [Suspect]
     Dosage: ONCE
     Dates: start: 20021115, end: 20021115
  5. CLONIDINE [Concomitant]
  6. MAGNEVIST [Suspect]
     Indication: NUCLEAR MAGNETIC RESONANCE IMAGING
     Route: 042
     Dates: start: 20021016, end: 20021016
  7. LASIX [Concomitant]
  8. MINOXIDIL [Concomitant]
  9. PROHANCE [Suspect]
     Indication: ANGIOGRAM
     Dates: start: 20021016, end: 20021016
  10. PROHANCE [Suspect]
     Indication: NUCLEAR MAGNETIC RESONANCE IMAGING
     Dates: start: 20021016, end: 20021016
  11. MAGNEVIST [Suspect]
     Dosage: ONCE
     Dates: start: 20040716, end: 20040716
  12. DIATX [Concomitant]
  13. VITAMINS NOS [Concomitant]
  14. INSULIN [Concomitant]
  15. FOSRENOL [Concomitant]
  16. COUMADIN [Concomitant]
  17. TEMAZEPAM [Concomitant]
  18. INSULIN HUMAN [Concomitant]
  19. CALCIUM ACETATE [Concomitant]
  20. MAGNEVIST [Suspect]
     Indication: ANGIOGRAM
     Dosage: ONCE
     Dates: start: 20050125, end: 20050125
  21. SEVELAMER [Concomitant]

REACTIONS (1)
  - NEPHROGENIC SYSTEMIC FIBROSIS [None]
